FAERS Safety Report 8580466-6 (Version None)
Quarter: 2012Q3

REPORT INFORMATION
  Report Type: 
  Country: None (occurrence: None)
  Receive Date: 20120808
  Receipt Date: 20070815
  Transmission Date: 20120928
  Serious: Yes (Other)
  Sender: FDA-Public Use
  Company Number: CO-PFIZER INC-2012190347

PATIENT
  Age: 67 Year
  Sex: Male

DRUGS (5)
  1. LIPITOR [Suspect]
     Indication: DYSLIPIDAEMIA
     Dosage: 10 MG, 1X/DAY
  2. QUINAPRIL AND HYDROCHLOROTHIAZIDE [Suspect]
     Indication: HYPERTENSION
     Dosage: 20 MG/ 12.5 MG, 1X/DAY
  3. ACETYLSALICYLIC ACID [Concomitant]
     Dosage: 100 MG, 1X/DAY
  4. NIFEDIPINE [Concomitant]
     Dosage: 30 MG, 1X/DAY
  5. METOPROLOL TARTRATE [Concomitant]
     Dosage: 100 MG, 1X/DAY

REACTIONS (2)
  - HYPERTENSIVE EMERGENCY [None]
  - CONFUSIONAL STATE [None]
